FAERS Safety Report 17030731 (Version 1)
Quarter: 2019Q4

REPORT INFORMATION
  Report Type: Spontaneous
  Country: US (occurrence: US)
  Receive Date: 20191114
  Receipt Date: 20191114
  Transmission Date: 20200122
  Serious: Yes (Hospitalization, Other)
  Sender: FDA-Public Use
  Company Number: US-MYLANLABS-2019M1109700

PATIENT
  Age: 65 Year
  Sex: Female

DRUGS (9)
  1. METHOTREXATE. [Suspect]
     Active Substance: METHOTREXATE
     Indication: BLASTIC PLASMACYTOID DENDRITIC CELL NEOPLASIA
     Dosage: UNK
     Route: 037
  2. DECADRON [Suspect]
     Active Substance: DEXAMETHASONE
     Indication: SWELLING FACE
  3. HYDROXYUREA. [Concomitant]
     Active Substance: HYDROXYUREA
     Indication: LEUKOCYTOSIS
     Dosage: UNK
     Route: 065
  4. CYCLOPHOSPHAMIDE. [Suspect]
     Active Substance: CYCLOPHOSPHAMIDE
     Indication: BLASTIC PLASMACYTOID DENDRITIC CELL NEOPLASIA
     Dosage: WITH 20% DOSE REDUCTION BASED ON AGE
     Route: 065
  5. HYDROXYUREA. [Concomitant]
     Active Substance: HYDROXYUREA
     Indication: CONDITION AGGRAVATED
  6. DEXAMETHASONE. [Suspect]
     Active Substance: DEXAMETHASONE
     Indication: BLASTIC PLASMACYTOID DENDRITIC CELL NEOPLASIA
     Dosage: WITH 20% DOSE REDUCTION BASED ON AGE
     Route: 065
  7. DOXORUBICIN [Suspect]
     Active Substance: DOXORUBICIN
     Indication: BLASTIC PLASMACYTOID DENDRITIC CELL NEOPLASIA
     Dosage: WITH 20% DOSE REDUCTION BASED ON AGE
     Route: 065
  8. DECADRON [Suspect]
     Active Substance: DEXAMETHASONE
     Indication: ENLARGED UVULA
     Dosage: UNK
     Route: 065
  9. VINCRISTINE [Suspect]
     Active Substance: VINCRISTINE
     Indication: BLASTIC PLASMACYTOID DENDRITIC CELL NEOPLASIA
     Dosage: WITH 20% DOSE REDUCTION BASED ON AGE
     Route: 065

REACTIONS (9)
  - Condition aggravated [Not Recovered/Not Resolved]
  - Disseminated intravascular coagulation [Not Recovered/Not Resolved]
  - Enlarged uvula [Recovering/Resolving]
  - Leukocytosis [Not Recovered/Not Resolved]
  - Febrile neutropenia [Recovering/Resolving]
  - Respiratory syncytial virus infection [Unknown]
  - Cellulitis [Unknown]
  - Atrial fibrillation [Recovering/Resolving]
  - Swelling face [Recovering/Resolving]
